FAERS Safety Report 4852550-1 (Version None)
Quarter: 2005Q4

REPORT INFORMATION
  Report Type: 
  Country: None (occurrence: None)
  Receive Date: 20051213
  Receipt Date: 20051206
  Transmission Date: 20060501
  Serious: Yes (Hospitalization)
  Sender: FDA-Public Use
  Company Number: PHRM2005FR03187

PATIENT
  Age: 68 Year
  Sex: Female

DRUGS (5)
  1. BROMAZEPAM [Suspect]
     Route: 048
  2. DEPAMIDE [Suspect]
     Route: 048
  3. ZOLPIDEM TARTRATE [Suspect]
     Route: 048
  4. SEROPRAM [Suspect]
     Route: 048
  5. TEGRETOL [Suspect]
     Route: 048

REACTIONS (6)
  - CONSTIPATION [None]
  - DEHYDRATION [None]
  - HYPOTENSION [None]
  - MALAISE [None]
  - MYOCLONUS [None]
  - VOMITING [None]
